FAERS Safety Report 9534961 (Version 2)
Quarter: 2013Q3

REPORT INFORMATION
  Report Type: Spontaneous
  Country: CN (occurrence: CN)
  Receive Date: 20130918
  Receipt Date: 20130924
  Transmission Date: 20140515
  Serious: Yes (Other)
  Sender: FDA-Public Use
  Company Number: CN-JNJFOC-20130907133

PATIENT
  Sex: 0

DRUGS (1)
  1. TOPIRAMATE [Suspect]
     Indication: EPILEPSY
     Route: 048

REACTIONS (26)
  - Memory impairment [Unknown]
  - Mental disorder [Unknown]
  - Aphasia [Unknown]
  - Hypothyroidism [Unknown]
  - Anaemia [Unknown]
  - Slow response to stimuli [Unknown]
  - Blood disorder [Unknown]
  - Hepatic function abnormal [Unknown]
  - Nephrolithiasis [Unknown]
  - Nystagmus [Unknown]
  - Sexual dysfunction [Unknown]
  - Anaesthesia [Unknown]
  - Alopecia [Unknown]
  - Menstrual disorder [Unknown]
  - Extrapyramidal disorder [Unknown]
  - Drug ineffective [Unknown]
  - Adverse event [Unknown]
  - Dizziness [Unknown]
  - Fatigue [Unknown]
  - Somnolence [Unknown]
  - Headache [Unknown]
  - Sleep disorder [Unknown]
  - Nausea [Unknown]
  - Rash [Unknown]
  - Weight decreased [Unknown]
  - Gastrointestinal disorder [Unknown]
